FAERS Safety Report 8154066-6 (Version None)
Quarter: 2012Q1

REPORT INFORMATION
  Report Type: 
  Country: None (occurrence: None)
  Receive Date: 20120221
  Receipt Date: 20120217
  Transmission Date: 20120608
  Serious: Yes (Death)
  Sender: FDA-Public Use
  Company Number: PA-ROCHE-1041620

PATIENT
  Sex: Female

DRUGS (1)
  1. XELODA [Suspect]
     Indication: HEPATIC NEOPLASM MALIGNANT
     Route: 048
     Dates: start: 20111020, end: 20120101

REACTIONS (1)
  - DISEASE PROGRESSION [None]
